FAERS Safety Report 5055322-0 (Version None)
Quarter: 2006Q3

REPORT INFORMATION
  Report Type: 
  Country: None (occurrence: None)
  Receive Date: 20060714
  Receipt Date: 20060626
  Transmission Date: 20061208
  Serious: Yes (Other)
  Sender: FDA-Public Use
  Company Number: JP200512003648

PATIENT
  Age: 56 Year
  Sex: Female
  Weight: 45 kg

DRUGS (3)
  1. GEMZAR [Suspect]
     Indication: PANCREATIC CARCINOMA STAGE IV
     Dosage: 1000 MG/M2, INTRAVENOUS
     Route: 042
     Dates: start: 20041201
  2. UFT [Concomitant]
  3. TS1 / JPN / (GIMERACIL OTERACIL POTASSIUM, TEGAFUR) [Concomitant]

REACTIONS (8)
  - DISEASE PROGRESSION [None]
  - JAUNDICE CHOLESTATIC [None]
  - MALIGNANT NEOPLASM PROGRESSION [None]
  - METASTASES TO LIVER [None]
  - METASTASES TO LYMPH NODES [None]
  - PANCREATIC CARCINOMA RECURRENT [None]
  - PANCREATIC CARCINOMA STAGE IV [None]
  - WHITE BLOOD CELL COUNT DECREASED [None]
